FAERS Safety Report 8057738-7 (Version None)
Quarter: 2012Q1

REPORT INFORMATION
  Report Type: 
  Country: None (occurrence: None)
  Receive Date: 20120120
  Receipt Date: 20120111
  Transmission Date: 20120608
  Serious: No
  Sender: FDA-Public Use
  Company Number: US-BIOGENIDEC-2012BI001420

PATIENT
  Age: 33 Year
  Sex: Female

DRUGS (1)
  1. TYSABRI [Suspect]
     Indication: MULTIPLE SCLEROSIS
     Route: 042
     Dates: start: 20110420

REACTIONS (7)
  - DYSPNOEA [None]
  - NEPHROLITHIASIS [None]
  - MYALGIA [None]
  - DRUG EFFECT DECREASED [None]
  - FATIGUE [None]
  - URINARY RETENTION [None]
  - URINARY TRACT INFECTION [None]
